FAERS Safety Report 4838812-2 (Version None)
Quarter: 2005Q4

REPORT INFORMATION
  Report Type: 
  Country: None (occurrence: None)
  Receive Date: 20051129
  Receipt Date: 20051013
  Transmission Date: 20060501
  Serious: No
  Sender: FDA-Public Use
  Company Number: US-GLAXOSMITHKLINE-A0578099A

PATIENT
  Age: 47 Year
  Sex: Female

DRUGS (1)
  1. COMMIT [Suspect]
     Dates: start: 20051010

REACTIONS (1)
  - NICOTINE DEPENDENCE [None]
